FAERS Safety Report 9728345 (Version 2)
Quarter: 2013Q4

REPORT INFORMATION
  Report Type: Report from Study
  Country: DE (occurrence: DE)
  Receive Date: 20131204
  Receipt Date: 20131204
  Transmission Date: 20140711
  Serious: Yes (Hospitalization)
  Sender: FDA-Public Use
  Company Number: PHHO2013DE015132

PATIENT
  Sex: 0

DRUGS (8)
  1. BLINDED ALISKIREN [Suspect]
     Indication: CARDIAC FAILURE
     Dosage: CODE NOT BROKEN
     Route: 048
     Dates: start: 20110217, end: 20130321
  2. BLINDED ENALAPRIL [Suspect]
     Indication: CARDIAC FAILURE
     Dosage: CODE NOT BROKEN
     Route: 048
     Dates: start: 20110217, end: 20130321
  3. BLINDED NO TREATMENT RECEIVED [Suspect]
     Indication: CARDIAC FAILURE
     Dosage: CODE NOT BROKEN
     Route: 048
     Dates: start: 20110217, end: 20130321
  4. TORASEMID [Concomitant]
     Indication: CARDIAC FAILURE CHRONIC
     Dosage: 10 MG, QD
     Dates: start: 20130308
  5. RAMIPRIL [Concomitant]
     Indication: CARDIAC FAILURE CHRONIC
     Dosage: 5 MG, BID
     Dates: start: 20130321
  6. METOPROLOL [Concomitant]
     Indication: CARDIAC FAILURE CHRONIC
     Dosage: 47.5 MG, QD
     Dates: start: 20121006
  7. AMLODIPIN ^ORIFARM^ [Concomitant]
     Indication: CARDIAC FAILURE CHRONIC
     Dosage: 5 MG, QD
     Dates: start: 20130314
  8. MOLSIDOMIN [Concomitant]
     Indication: CARDIAC FAILURE CHRONIC
     Dosage: 8 MG, QD
     Dates: start: 20130314

REACTIONS (1)
  - Cervicogenic headache [Recovered/Resolved]
